FAERS Safety Report 22642603 (Version 1)
Quarter: 2023Q2

REPORT INFORMATION
  Report Type: Spontaneous
  Country: US (occurrence: US)
  Receive Date: 20230627
  Receipt Date: 20230627
  Transmission Date: 20230722
  Serious: No
  Sender: FDA-Public Use
  Company Number: US-LUPIN PHARMACEUTICALS INC.-2023-04903

PATIENT

DRUGS (3)
  1. TRI-LO-MARZIA [Suspect]
     Active Substance: ETHINYL ESTRADIOL\NORGESTIMATE
     Indication: Oral contraception
     Dosage: 1 DOSAGE FORM, QD (0180MG/0.025 MG? 0.215 MG/.025MG AND 0.250MG/0.025MG)
     Route: 048
     Dates: start: 2021
  2. TRI-LO-MARZIA [Suspect]
     Active Substance: ETHINYL ESTRADIOL\NORGESTIMATE
     Dosage: 1 DOSAGE FORM, QD
     Route: 048
  3. XANAX [Concomitant]
     Active Substance: ALPRAZOLAM
     Indication: Product used for unknown indication
     Dosage: 25 UNK, PRN, (LESS THAN 1X A MONTH)
     Route: 065

REACTIONS (1)
  - Smear cervix abnormal [Unknown]
